FAERS Safety Report 5557980-0 (Version None)
Quarter: 2007Q4

REPORT INFORMATION
  Report Type: 
  Country: None (occurrence: None)
  Receive Date: 20071211
  Receipt Date: 20071130
  Transmission Date: 20080405
  Serious: Yes (Congenital Anomaly)
  Sender: FDA-Public Use
  Company Number: 2007-165535-NL

PATIENT
  Sex: Female

DRUGS (1)
  1. PREGNYL [Suspect]

REACTIONS (3)
  - ABORTION INDUCED [None]
  - ANENCEPHALY [None]
  - DRUG EXPOSURE BEFORE PREGNANCY [None]
